FAERS Safety Report 9516995 (Version 1)
Quarter: 2013Q3

REPORT INFORMATION
  Report Type: Spontaneous
  Country: FR (occurrence: FR)
  Receive Date: 20130911
  Receipt Date: 20130911
  Transmission Date: 20140515
  Serious: Yes (Hospitalization)
  Sender: FDA-Public Use
  Company Number: FR-BAXTER-2013BAX034780

PATIENT
  Age: 67 Year
  Sex: Male
  Weight: 49 kg

DRUGS (8)
  1. HOLOXAN [Suspect]
     Indication: B-CELL LYMPHOMA
     Dosage: 5 G/M2
     Route: 042
     Dates: start: 20130726, end: 20130726
  2. UROMITEXAN [Suspect]
     Indication: PRODUCT USED FOR UNKNOWN INDICATION
     Route: 042
     Dates: start: 20130726, end: 20130726
  3. ETOPOSIDE [Suspect]
     Indication: B-CELL LYMPHOMA
     Route: 042
     Dates: start: 20130725, end: 20130727
  4. CARBOPLATIN [Suspect]
     Indication: B-CELL LYMPHOMA
     Route: 042
     Dates: start: 20130726, end: 20130726
  5. MABTHERA [Suspect]
     Indication: B-CELL LYMPHOMA
     Route: 042
     Dates: start: 20130725, end: 20130725
  6. FASTURTEC [Suspect]
     Indication: PROPHYLAXIS
     Route: 042
     Dates: start: 20130726, end: 20130726
  7. CEFTRIAXONE [Suspect]
     Indication: PRODUCT USED FOR UNKNOWN INDICATION
     Route: 042
     Dates: start: 20130726, end: 20130729
  8. AMIKACINE [Suspect]
     Indication: PRODUCT USED FOR UNKNOWN INDICATION
     Route: 042
     Dates: start: 20130726, end: 20130729

REACTIONS (1)
  - Encephalopathy [Recovered/Resolved]
